FAERS Safety Report 12624398 (Version 1)
Quarter: 2016Q3

REPORT INFORMATION
  Report Type: Spontaneous
  Country: DK (occurrence: DK)
  Receive Date: 20160805
  Receipt Date: 20160805
  Transmission Date: 20161109
  Serious: Yes (Hospitalization)
  Sender: FDA-Public Use
  Company Number: DK-ABBVIE-16K-044-1691897-00

PATIENT
  Age: 74 Year
  Sex: Male
  Weight: 66 kg

DRUGS (1)
  1. HUMIRA [Suspect]
     Active Substance: ADALIMUMAB
     Indication: PSORIASIS
     Route: 058
     Dates: start: 2006, end: 201607

REACTIONS (2)
  - Interstitial lung disease [Recovering/Resolving]
  - Computerised tomogram thorax abnormal [Recovering/Resolving]

NARRATIVE: CASE EVENT DATE: 201606
